FAERS Safety Report 5808454-0 (Version None)
Quarter: 2008Q3

REPORT INFORMATION
  Report Type: 
  Country: None (occurrence: None)
  Receive Date: 20080710
  Receipt Date: 20080710
  Transmission Date: 20090109
  Serious: Yes (Hospitalization)
  Sender: FDA-Public Use
  Company Number: None

PATIENT
  Age: 50 Year
  Sex: Male
  Weight: 89 kg

DRUGS (10)
  1. BEVACIZUMAB 15 MG/KG Q3WEEKS [Suspect]
     Indication: GLIOBLASTOMA
     Dosage: IV CYCLE 1 DAY 1=6/16/08
     Route: 042
     Dates: start: 20080616
  2. BORTEZOMIB 2.5 MG/KG DAY 1,4,8,11,22,25,29,32 [Suspect]
     Indication: GLIOBLASTOMA
     Dosage: IV CYCLE 1 DAY 1=6/16/08
     Route: 042
     Dates: start: 20080616
  3. OMNICEF [Concomitant]
  4. MS CONTIN [Concomitant]
  5. VICODIN [Concomitant]
  6. DILANTIN [Concomitant]
  7. DECADRON [Concomitant]
  8. ZESTRIL [Concomitant]
  9. NEXIUM [Concomitant]
  10. K-DUR [Concomitant]

REACTIONS (12)
  - AMNESIA [None]
  - ATELECTASIS [None]
  - BACTERIA URINE IDENTIFIED [None]
  - CHILLS [None]
  - CONFUSIONAL STATE [None]
  - CONVULSION [None]
  - FALL [None]
  - LUNG INFILTRATION [None]
  - NAUSEA [None]
  - PYREXIA [None]
  - SPINAL COMPRESSION FRACTURE [None]
  - WALKING AID USER [None]
